FAERS Safety Report 7364388-4 (Version None)
Quarter: 2011Q1

REPORT INFORMATION
  Report Type: 
  Country: None (occurrence: None)
  Receive Date: 20110321
  Receipt Date: 20110315
  Transmission Date: 20110831
  Serious: Yes (Hospitalization)
  Sender: FDA-Public Use
  Company Number: US-JNJFOC-20110307139

PATIENT
  Sex: Female
  Weight: 99.79 kg

DRUGS (1)
  1. LEVAQUIN [Suspect]
     Indication: POST PROCEDURAL INFECTION
     Route: 048

REACTIONS (7)
  - UNEVALUABLE EVENT [None]
  - TENDONITIS [None]
  - BRONCHITIS [None]
  - HYPERTENSION [None]
  - BACK PAIN [None]
  - WEIGHT DECREASED [None]
  - TRANSIENT ISCHAEMIC ATTACK [None]
